FAERS Safety Report 8381176-0 (Version None)
Quarter: 2012Q2

REPORT INFORMATION
  Report Type: 
  Country: None (occurrence: None)
  Receive Date: 20120523
  Receipt Date: 20120516
  Transmission Date: 20120825
  Serious: Yes (Other)
  Sender: FDA-Public Use
  Company Number: FR-ABBOTT-12P-056-0936179-00

PATIENT
  Sex: Female

DRUGS (11)
  1. LEVOTHYROXINE SODIC [Concomitant]
     Indication: HYPOTHYROIDISM
     Route: 048
  2. FOSAMPRENAVIR CALCIUM [Suspect]
     Dates: start: 20110825
  3. FOSAMPRENAVIR CALCIUM [Suspect]
     Dates: start: 20080720, end: 20110426
  4. NORVIR [Suspect]
     Dates: start: 20110505
  5. FOSAMPRENAVIR CALCIUM [Suspect]
     Indication: HIV TEST POSITIVE
     Route: 048
     Dates: start: 20051205, end: 20071015
  6. ABACAVIR SULFATE/LAMIVUDINE [Suspect]
     Indication: HIV TEST POSITIVE
     Route: 048
     Dates: start: 20060123
  7. NOCTAMIDE [Concomitant]
     Indication: INSOMNIA
     Route: 048
  8. NORVIR [Suspect]
     Dates: start: 20080720, end: 20110426
  9. FOSAMPRENAVIR CALCIUM [Suspect]
     Dates: start: 20110505, end: 20110709
  10. NORVIR [Suspect]
     Indication: HIV TEST POSITIVE
     Route: 048
     Dates: start: 20051205, end: 20080701
  11. FOSAMPRENAVIR CALCIUM [Suspect]
     Dates: start: 20071231, end: 20090701

REACTIONS (6)
  - DYSLIPIDAEMIA [None]
  - VERTIGO [None]
  - HEADACHE [None]
  - HYPERCHOLESTEROLAEMIA [None]
  - DYSPEPSIA [None]
  - HYPERTRIGLYCERIDAEMIA [None]
